FAERS Safety Report 4303683-X (Version None)
Quarter: 2004Q1

REPORT INFORMATION
  Report Type: 
  Country: None (occurrence: None)
  Receive Date: 20040126
  Receipt Date: 20031022
  Transmission Date: 20041129
  Serious: No
  Sender: FDA-Public Use
  Company Number: USA030948662

PATIENT
  Age: 41 Year
  Sex: Male

DRUGS (5)
  1. STRATTERA [Suspect]
     Indication: ATTENTION DEFICIT/HYPERACTIVITY DISORDER
     Dosage: 80 MG/DAY
     Dates: start: 20030415
  2. NEURONTIN [Concomitant]
  3. TRAZODONE HCL [Concomitant]
  4. NARDIL [Concomitant]
  5. LIBRIUM [Concomitant]

REACTIONS (1)
  - INTRAOCULAR PRESSURE INCREASED [None]
